FAERS Safety Report 4980619-X (Version None)
Quarter: 2006Q2

REPORT INFORMATION
  Report Type: 
  Country: None (occurrence: None)
  Receive Date: 20060424
  Receipt Date: 20050901
  Transmission Date: 20061013
  Serious: Yes (Other)
  Sender: FDA-Public Use
  Company Number: US-MERCK-0509USA00430

PATIENT
  Age: 80 Year
  Sex: Male

DRUGS (2)
  1. VIOXX [Suspect]
     Indication: ARTHRITIS
     Route: 048
     Dates: start: 20010124, end: 20040701
  2. VERAPAMIL [Concomitant]
     Route: 065

REACTIONS (3)
  - ASTHENIA [None]
  - CARDIAC DISORDER [None]
  - RENAL DISORDER [None]
